FAERS Safety Report 6017400-9 (Version None)
Quarter: 2008Q4

REPORT INFORMATION
  Report Type: 
  Country: None (occurrence: None)
  Receive Date: 20081223
  Receipt Date: 20081211
  Transmission Date: 20090506
  Serious: Yes (Other)
  Sender: FDA-Public Use
  Company Number: FI-JNJFOC-20081203468

PATIENT
  Sex: Male

DRUGS (1)
  1. REMICADE [Suspect]
     Indication: COLITIS
     Dosage: NUMBER OF INFUSIONS REPORTED AS UNKNOWN
     Route: 042

REACTIONS (4)
  - BLISTER [None]
  - IRITIS [None]
  - PNEUMONIA [None]
  - SKIN EXFOLIATION [None]
